FAERS Safety Report 6889452-5 (Version None)
Quarter: 2010Q3

REPORT INFORMATION
  Report Type: 
  Country: None (occurrence: None)
  Receive Date: 20100730
  Receipt Date: 20080606
  Transmission Date: 20110219
  Serious: No
  Sender: FDA-Public Use
  Company Number: US-PFIZER INC-2008019036

PATIENT
  Sex: Female
  Weight: 65.909 kg

DRUGS (2)
  1. LIPITOR [Suspect]
     Indication: BLOOD CHOLESTEROL ABNORMAL
     Route: 048
     Dates: start: 20080101
  2. ACETYLSALICYLIC ACID SRT [Concomitant]

REACTIONS (1)
  - EYE COMPLICATION ASSOCIATED WITH DEVICE [None]
